FAERS Safety Report 9720082 (Version 1)
Quarter: 2013Q4

REPORT INFORMATION
  Report Type: Spontaneous
  Country: GB (occurrence: GB)
  Receive Date: 20131128
  Receipt Date: 20131128
  Transmission Date: 20140711
  Serious: Yes (Other)
  Sender: FDA-Public Use
  Company Number: ALCN2013GB005934

PATIENT
  Age: 26 Year
  Sex: Female

DRUGS (2)
  1. FLUORESCITE [Suspect]
     Indication: DIAGNOSTIC PROCEDURE
     Dosage: 4 ML, ONCE/SINGLE
     Route: 042
     Dates: start: 20131105, end: 20131105
  2. DICLOFENAC [Concomitant]
     Route: 048

REACTIONS (3)
  - Cough [Recovered/Resolved]
  - Oral pruritus [Recovered/Resolved]
  - Throat irritation [Recovered/Resolved]
